FAERS Safety Report 18326029 (Version 1)
Quarter: 2020Q3

REPORT INFORMATION
  Report Type: Spontaneous
  Country: US (occurrence: US)
  Receive Date: 20200929
  Receipt Date: 20200929
  Transmission Date: 20201103
  Serious: Yes (Other)
  Sender: FDA-Public Use
  Company Number: US-MYLANLABS-2020M1081607

PATIENT
  Sex: Female
  Weight: 61 kg

DRUGS (2)
  1. MAPROTILINE [Suspect]
     Active Substance: MAPROTILINE
     Indication: ANXIETY
     Dosage: 25 MILLIGRAM, QD  (ONCE PER DAY)
     Route: 048
     Dates: end: 20191231
  2. MAPROTILINE [Suspect]
     Active Substance: MAPROTILINE
     Indication: ANXIETY
     Dosage: 75 MILLIGRAM, QD  (ONCE PER DAY)
     Route: 048
     Dates: end: 20191231

REACTIONS (5)
  - Oral pain [Not Recovered/Not Resolved]
  - Productive cough [Not Recovered/Not Resolved]
  - Nasal discomfort [Not Recovered/Not Resolved]
  - Neuropathy peripheral [Not Recovered/Not Resolved]
  - Nasal congestion [Not Recovered/Not Resolved]
